FAERS Safety Report 10362937 (Version 1)
Quarter: 2014Q1

REPORT INFORMATION
  Report Type: Spontaneous
  Country: US (occurrence: None)
  Receive Date: 20140306
  Receipt Date: 20140306
  Transmission Date: 20141002
  Serious: Yes (Other)
  Sender: FDA-Public Use
  Company Number: 163-21880-13022011

PATIENT
  Age: 57 Year
  Sex: Female

DRUGS (10)
  1. REVLIMID (LENALIDOMIDE) (25 MILLIGRAM, CAPSULES) [Suspect]
     Indication: PLASMA CELL MYELOMA
     Dosage: 25 MG, 21 IN 21 D, PO
     Route: 048
     Dates: start: 20121116
  2. CRESTOR (ROSUVASTATIN) [Concomitant]
  3. FERROUS GLUCONATE [Concomitant]
  4. HEMORRHOIDAL CREAM (HYDROCORTISONE ACETATE) [Concomitant]
  5. METFORMIN HCL (METFORMIN HYDROCHLORIDE) [Concomitant]
  6. PRILOSEC (OMEPRAZOLE) [Concomitant]
  7. SYNTHROID (LEVOTHYROXINE SODIUM) [Concomitant]
  8. XANAX (ALPRAZOLAM) [Concomitant]
  9. ZOLOFT (SERTRALINE HYDROCHLORIDE) [Concomitant]
  10. ZOMETA (ZOLEDRONIC ACID) [Concomitant]

REACTIONS (2)
  - Haemoglobin decreased [None]
  - Platelet count decreased [None]
